FAERS Safety Report 15599427 (Version 1)
Quarter: 2018Q4

REPORT INFORMATION
  Report Type: Spontaneous
  Country: CN (occurrence: CN)
  Receive Date: 20181108
  Receipt Date: 20181108
  Transmission Date: 20190205
  Serious: Yes (Other)
  Sender: FDA-Public Use
  Company Number: CN-PFIZER INC-2018445419

PATIENT
  Age: 81 Year
  Sex: Male
  Weight: 55 kg

DRUGS (5)
  1. VFEND [Interacting]
     Active Substance: VORICONAZOLE
     Dosage: 200 MG, 2X/DAY
     Route: 041
     Dates: start: 20180828, end: 20180904
  2. VFEND [Suspect]
     Active Substance: VORICONAZOLE
     Indication: INFECTION
     Dosage: 300 MG, FIST DOSE
     Route: 041
     Dates: start: 20180828, end: 20180828
  3. SODIUM CHLORIDE. [Concomitant]
     Active Substance: SODIUM CHLORIDE
     Indication: VEHICLE SOLUTION USE
     Dosage: 100 ML, 2X/DAY
     Route: 041
     Dates: start: 20180828, end: 20180904
  4. YOU JIA [Interacting]
     Active Substance: ATORVASTATIN CALCIUM
     Indication: CARDIAC DISORDER
     Dosage: 10 MG, 1X/DAY
     Route: 048
     Dates: start: 20180827, end: 20180904
  5. YOU JIA [Interacting]
     Active Substance: ATORVASTATIN CALCIUM
     Indication: CARDIAC VALVE DISEASE

REACTIONS (6)
  - Drug interaction [Unknown]
  - Drug level increased [Unknown]
  - Aspartate aminotransferase increased [Recovering/Resolving]
  - Myalgia [Recovering/Resolving]
  - Blood creatine phosphokinase MB increased [Recovering/Resolving]
  - Blood creatine phosphokinase increased [Recovering/Resolving]

NARRATIVE: CASE EVENT DATE: 20180904
